FAERS Safety Report 24778447 (Version 1)
Quarter: 2024Q4

REPORT INFORMATION
  Report Type: Spontaneous
  Country: US (occurrence: US)
  Receive Date: 20241226
  Receipt Date: 20241226
  Transmission Date: 20250114
  Serious: No
  Sender: SANOFI AVENTIS
  Company Number: US-SANOFI-02347383

PATIENT
  Age: 73 Year
  Sex: Female

DRUGS (1)
  1. APIDRA [Suspect]
     Active Substance: INSULIN GLULISINE
     Indication: Type 2 diabetes mellitus
     Dosage: 40 TO 50 UNITS OF APIDRA PER DAY, SPLIT AMONG HER MEALS
     Route: 065

REACTIONS (1)
  - Intentional product misuse [Unknown]
